FAERS Safety Report 20590186 (Version 1)
Quarter: 2022Q1

REPORT INFORMATION
  Report Type: Spontaneous
  Country: US (occurrence: None)
  Receive Date: 20220312
  Receipt Date: 20220312
  Transmission Date: 20220424
  Serious: Yes (Hospitalization)
  Sender: FDA-Public Use
  Company Number: None

PATIENT
  Sex: Female

DRUGS (23)
  1. BRAFTOVI [Suspect]
     Active Substance: ENCORAFENIB
     Dosage: FREQUENCY : DAILY;?
     Route: 048
  2. MEKTOVI [Suspect]
     Active Substance: BINIMETINIB
     Dosage: FREQUENCY : DAILY;?
     Route: 048
  3. TYLENOL [Concomitant]
     Active Substance: ACETAMINOPHEN
  4. AMIODARONE [Concomitant]
     Active Substance: AMIODARONE
  5. AMITIZA [Concomitant]
     Active Substance: LUBIPROSTONE
  6. BRAFTOVI [Concomitant]
     Active Substance: ENCORAFENIB
  7. CLONAZEPAM [Concomitant]
     Active Substance: CLONAZEPAM
  8. COLACE [Concomitant]
     Active Substance: DOCUSATE SODIUM
  9. COUMADIN [Concomitant]
     Active Substance: WARFARIN SODIUM
  10. VITAMIN B12 [Concomitant]
     Active Substance: CYANOCOBALAMIN
  11. COLACE [Concomitant]
     Active Substance: DOCUSATE SODIUM
  12. CYMBALTA [Concomitant]
     Active Substance: DULOXETINE HYDROCHLORIDE
  13. VITAMIN D2 [Concomitant]
     Active Substance: ERGOCALCIFEROL
  14. ESTRACE [Concomitant]
     Active Substance: ESTRADIOL
  15. FERROUS SULFATE [Concomitant]
     Active Substance: FERROUS SULFATE
  16. LASIX [Concomitant]
     Active Substance: FUROSEMIDE
  17. NORCO [Concomitant]
     Active Substance: ACETAMINOPHEN\HYDROCODONE BITARTRATE
  18. CLONAZEPAM [Concomitant]
     Active Substance: CLONAZEPAM
  19. LIPITOR [Concomitant]
     Active Substance: ATORVASTATIN CALCIUM
  20. MEKTOVI [Concomitant]
     Active Substance: BINIMETINIB
  21. methrocarbamol [Concomitant]
  22. METOPROLOL [Concomitant]
     Active Substance: METOPROLOL
  23. MIRTAZAPINE [Concomitant]
     Active Substance: MIRTAZAPINE

REACTIONS (1)
  - Medical procedure [None]
